FAERS Safety Report 4445495-2 (Version None)
Quarter: 2004Q3

REPORT INFORMATION
  Report Type: 
  Country: None (occurrence: None)
  Receive Date: 20040804
  Receipt Date: 20031202
  Transmission Date: 20050211
  Serious: Yes (Other)
  Sender: FDA-Public Use
  Company Number: 10045199-NA01-0

PATIENT

DRUGS (1)
  1. STERILE WATER [Suspect]
     Dosage: 500 ML
     Route: 042

REACTIONS (2)
  - HAEMOLYSIS [None]
  - MEDICATION ERROR [None]
